FAERS Safety Report 21879986 (Version 2)
Quarter: 2023Q1

REPORT INFORMATION
  Report Type: Spontaneous
  Country: US (occurrence: US)
  Receive Date: 20230118
  Receipt Date: 20230120
  Transmission Date: 20230417
  Serious: No
  Sender: FDA-Public Use
  Company Number: US-BRISTOL-MYERS SQUIBB COMPANY-2023-007383

PATIENT
  Age: 89 Year
  Sex: Male
  Weight: 82 kg

DRUGS (1)
  1. REVLIMID [Suspect]
     Active Substance: LENALIDOMIDE
     Indication: Plasma cell myeloma
     Dosage: D1-21 Q28 DAYS
     Route: 048
     Dates: start: 20230110

REACTIONS (2)
  - Vision blurred [Recovered/Resolved]
  - Malaise [Not Recovered/Not Resolved]

NARRATIVE: CASE EVENT DATE: 20230110
